FAERS Safety Report 22888068 (Version 3)
Quarter: 2024Q2

REPORT INFORMATION
  Report Type: Spontaneous
  Country: AT (occurrence: AT)
  Receive Date: 20230831
  Receipt Date: 20240409
  Transmission Date: 20240716
  Serious: Yes (Death, Life-Threatening, Hospitalization, Other)
  Sender: FDA-Public Use
  Company Number: AT-PFIZER INC-PV202300146825

PATIENT
  Age: 66 Year
  Sex: Male

DRUGS (2)
  1. LIDOCAINE [Suspect]
     Active Substance: LIDOCAINE
     Dosage: 5 ML (IN THE LEFT PARAVERTEBRAL REGION BETWEEN THE FIFTH AND SIXTH CERVICAL VERTEBRAE)
     Route: 019
  2. CORTISONE [Suspect]
     Active Substance: CORTISONE
     Dosage: UNK, IN THE LEFT PARAVERTEBRAL REGION BETWEEN THE FIFTH AND SIXTH CERVICAL VERTEBRAE
     Route: 019

REACTIONS (1)
  - Embolism arterial [Fatal]
